FAERS Safety Report 4779912-5 (Version None)
Quarter: 2005Q3

REPORT INFORMATION
  Report Type: 
  Country: None (occurrence: None)
  Receive Date: 20050914
  Receipt Date: 20050430
  Transmission Date: 20060218
  Serious: Yes (Other)
  Sender: FDA-Public Use
  Company Number: 163-20785-05050035

PATIENT
  Age: 60 Year
  Sex: Male

DRUGS (3)
  1. THALOMID [Suspect]
     Indication: MULTIPLE MYELOMA
     Dosage: 800 MG, DAILY, ORAL;  50 MG, DAILY, ORAL
     Route: 048
     Dates: start: 20020927
  2. THALOMID [Suspect]
     Indication: MULTIPLE MYELOMA
     Dosage: 800 MG, DAILY, ORAL;  50 MG, DAILY, ORAL
     Route: 048
     Dates: start: 20030801
  3. LEVAQUIN [Concomitant]

REACTIONS (5)
  - ARTHRALGIA [None]
  - DEEP VEIN THROMBOSIS [None]
  - OEDEMA PERIPHERAL [None]
  - PETECHIAE [None]
  - TREMOR [None]
